FAERS Safety Report 23546507 (Version 1)
Quarter: 2024Q1

REPORT INFORMATION
  Report Type: Spontaneous
  Country: US (occurrence: US)
  Receive Date: 20240221
  Receipt Date: 20240221
  Transmission Date: 20240410
  Serious: No
  Sender: FDA-Public Use
  Company Number: US-SA-SAC20240213000233

PATIENT
  Sex: Female

DRUGS (2)
  1. DUPIXENT [Suspect]
     Active Substance: DUPILUMAB
     Indication: Dermatitis atopic
     Dosage: 300MG EVERY 3 WEEKS
     Route: 058
  2. GELSYN 3 [Concomitant]
     Dosage: UNK

REACTIONS (2)
  - Eczema [Unknown]
  - Intentional product misuse [Unknown]
